FAERS Safety Report 7270358-7 (Version None)
Quarter: 2011Q1

REPORT INFORMATION
  Report Type: 
  Country: None (occurrence: None)
  Receive Date: 20110202
  Receipt Date: 20110122
  Transmission Date: 20110831
  Serious: Yes (Death)
  Sender: FDA-Public Use
  Company Number: IR-GENENTECH-312881

PATIENT
  Age: 30 Year
  Sex: Male

DRUGS (1)
  1. MABTHERA [Suspect]
     Indication: SYSTEMIC LUPUS ERYTHEMATOSUS
     Dosage: UNK
     Route: 042
     Dates: start: 20110101

REACTIONS (1)
  - PULMONARY ALVEOLAR HAEMORRHAGE [None]
